FAERS Safety Report 8226171-7 (Version None)
Quarter: 2012Q1

REPORT INFORMATION
  Report Type: 
  Country: None (occurrence: None)
  Receive Date: 20120307
  Receipt Date: 20091005
  Transmission Date: 20120608
  Serious: No
  Sender: FDA-Public Use
  Company Number: PHEH2009US13589

PATIENT
  Age: 69 Year
  Sex: Male

DRUGS (2)
  1. AFINITOR [Suspect]
     Dosage: 10 MG, DAILY, ORAL 10 MG, EVERY OTHER DAY, ORAL
     Route: 048
     Dates: start: 20090601
  2. AFINITOR [Suspect]
     Dosage: 10 MG, DAILY, ORAL 10 MG, EVERY OTHER DAY, ORAL
     Route: 048
     Dates: start: 20090401

REACTIONS (4)
  - ADVERSE EVENT [None]
  - HYPOPHAGIA [None]
  - OROPHARYNGEAL BLISTERING [None]
  - BLOOD GLUCOSE DECREASED [None]
